FAERS Safety Report 25114824 (Version 1)
Quarter: 2025Q1

REPORT INFORMATION
  Report Type: Spontaneous
  Country: CN (occurrence: CN)
  Receive Date: 20250324
  Receipt Date: 20250324
  Transmission Date: 20250408
  Serious: Yes (Hospitalization)
  Sender: TAKEDA
  Company Number: CN-HUTCHMED LIMITED-HMP2025CN00667

PATIENT
  Age: 66 Year
  Sex: Male
  Weight: 67 kg

DRUGS (1)
  1. FRUQUINTINIB [Suspect]
     Active Substance: FRUQUINTINIB
     Indication: Colon cancer
     Dates: start: 20250221, end: 20250307

REACTIONS (3)
  - Gingival erosion [Recovering/Resolving]
  - Gingival abscess [Recovering/Resolving]
  - Palatal disorder [Unknown]

NARRATIVE: CASE EVENT DATE: 20250307
